FAERS Safety Report 16066813 (Version 1)
Quarter: 2019Q1

REPORT INFORMATION
  Report Type: Spontaneous
  Country: US (occurrence: US)
  Receive Date: 20190212
  Receipt Date: 20190212
  Transmission Date: 20190418
  Serious: No
  Sender: FDA-Public Use
  Company Number: None

PATIENT

DRUGS (3)
  1. ETOPOSIDE. [Suspect]
     Active Substance: ETOPOSIDE
  2. DOXORUBICIN [Suspect]
     Active Substance: DOXORUBICIN
  3. VINCRISTINE [Suspect]
     Active Substance: VINCRISTINE

REACTIONS (4)
  - Accidental exposure to product [None]
  - Skin burning sensation [None]
  - Complication associated with device [None]
  - Device connection issue [None]
